FAERS Safety Report 5327944-0 (Version None)
Quarter: 2007Q2

REPORT INFORMATION
  Report Type: 
  Country: None (occurrence: None)
  Receive Date: 20070517
  Receipt Date: 20070507
  Transmission Date: 20071010
  Serious: Yes (Other)
  Sender: FDA-Public Use
  Company Number: ES-PFIZER INC-2007031317

PATIENT
  Sex: Female

DRUGS (12)
  1. LYRICA [Suspect]
     Indication: POST HERPETIC NEURALGIA
     Route: 048
     Dates: start: 20070320, end: 20070410
  2. FAMCICLOVIR [Concomitant]
  3. AZATHIOPRINE [Concomitant]
  4. PREDNISONE TAB [Concomitant]
  5. LEVOTHROID [Concomitant]
  6. COAPROVEL [Concomitant]
  7. HYDROCHLOROTHIAZIDE [Concomitant]
  8. LEXATIN [Concomitant]
  9. VALIUM [Concomitant]
  10. IRON SULFATETHIAMIN COMPOUND TAB [Concomitant]
  11. PANTECTA [Concomitant]
  12. COLEMIN [Concomitant]

REACTIONS (2)
  - HYPERGLYCAEMIA [None]
  - VERTIGO [None]
